FAERS Safety Report 18165182 (Version 1)
Quarter: 2020Q3

REPORT INFORMATION
  Report Type: Report from Study
  Country: None (occurrence: IL)
  Receive Date: 20200819
  Receipt Date: 20200819
  Transmission Date: 20201103
  Serious: Yes (Other)
  Sender: FDA-Public Use
  Company Number: IL-ABBVIE-20K-082-3510096-00

PATIENT
  Age: 35 Year
  Sex: Male

DRUGS (1)
  1. HUMIRA [Suspect]
     Active Substance: ADALIMUMAB
     Indication: PSORIASIS
     Route: 058
     Dates: start: 20191118

REACTIONS (1)
  - Mouth cyst [Unknown]

NARRATIVE: CASE EVENT DATE: 20200802
